FAERS Safety Report 8268760-X (Version None)
Quarter: 2012Q2

REPORT INFORMATION
  Report Type: 
  Country: None (occurrence: None)
  Receive Date: 20120409
  Receipt Date: 20120409
  Transmission Date: 20120825
  Serious: Yes (Hospitalization)
  Sender: FDA-Public Use
  Company Number: None

PATIENT
  Age: 64 Year
  Sex: Male
  Weight: 64 kg

DRUGS (1)
  1. ASPIRIN [Suspect]
     Dosage: 81MG
     Route: 048

REACTIONS (1)
  - MELAENA [None]
